FAERS Safety Report 19052692 (Version 2)
Quarter: 2021Q1

REPORT INFORMATION
  Report Type: Report from Study
  Country: US (occurrence: US)
  Receive Date: 20210324
  Receipt Date: 20210331
  Transmission Date: 20210420
  Serious: Yes (Other)
  Sender: FDA-Public Use
  Company Number: US-JNJFOC-20210228572

PATIENT
  Age: 54 Year
  Sex: Female
  Weight: 69.5 kg

DRUGS (6)
  1. EPOPROSTENOL SODIUM. [Suspect]
     Active Substance: EPOPROSTENOL SODIUM
     Route: 042
  2. TREPROSTINIL. [Suspect]
     Active Substance: TREPROSTINIL
     Route: 048
     Dates: start: 20210215
  3. EPOPROSTENOL SODIUM. [Suspect]
     Active Substance: EPOPROSTENOL SODIUM
     Route: 042
  4. COVID VACCINE [Concomitant]
     Dates: start: 202101
  5. EPOPROSTENOL SODIUM. [Suspect]
     Active Substance: EPOPROSTENOL SODIUM
     Indication: PULMONARY ARTERIAL HYPERTENSION
     Route: 042
  6. MACITENTAN [Suspect]
     Active Substance: MACITENTAN
     Indication: PULMONARY ARTERIAL HYPERTENSION
     Route: 048

REACTIONS (12)
  - Pyrexia [Unknown]
  - Headache [Unknown]
  - Palpitations [Unknown]
  - Dyspepsia [Unknown]
  - Dyspnoea [Unknown]
  - Pulmonary arterial hypertension [Unknown]
  - Dyspnoea exertional [Unknown]
  - Chest discomfort [Unknown]
  - Flushing [Unknown]
  - Pain in jaw [Unknown]
  - Diarrhoea [Unknown]
  - Sepsis [Unknown]

NARRATIVE: CASE EVENT DATE: 20210215
